FAERS Safety Report 8145179-3 (Version None)
Quarter: 2012Q1

REPORT INFORMATION
  Report Type: 
  Country: None (occurrence: None)
  Receive Date: 20120217
  Receipt Date: 20120207
  Transmission Date: 20120608
  Serious: Yes (Hospitalization)
  Sender: FDA-Public Use
  Company Number: US-UCBSA-050284

PATIENT
  Age: 79 Year
  Sex: Female

DRUGS (19)
  1. DIOVAN [Concomitant]
     Route: 048
  2. PREDNISONE [Concomitant]
     Dosage: 5 MG DAILY
  3. RECLAST [Concomitant]
     Dosage: IV INFUSION ONCE YEARLY(LAST IN AUGUST 2011)
     Route: 042
  4. SINGULAIR [Concomitant]
     Dosage: 10 MG DAILY
  5. SPIRIVA [Concomitant]
     Dosage: HAND HELD INHALER
  6. ADVAIR DISKUS 100/50 [Concomitant]
     Dosage: 250-50 MCG AS DIRECTED
  7. ULTAMAX [Concomitant]
  8. SYNTHROID [Concomitant]
     Dosage: 25 MCG DAILY
  9. URSODIOL [Concomitant]
  10. ACTOS [Concomitant]
     Indication: DIABETES MELLITUS
  11. CHOLCYSTYRAMINE [Concomitant]
     Dosage: BULK POWDER TWICE DAILY
     Route: 048
  12. GLIMERIDE [Concomitant]
     Dosage: 2 MG DAILY
  13. CRESTOR [Concomitant]
     Dosage: 40 MG DAILY
  14. FOLIC ACID [Concomitant]
     Dosage: 400 MG DAILY
  15. CIMZIA [Suspect]
     Indication: RHEUMATOID ARTHRITIS
     Route: 058
     Dates: start: 20101101
  16. DEXALANT [Concomitant]
     Dosage: DELAYED RELEASE
  17. PLAVIX [Concomitant]
     Dosage: 75 MG DAILY
  18. VERAPAMIL [Concomitant]
     Dosage: 120 MG DAILY
  19. SANCTURA XR [Concomitant]

REACTIONS (2)
  - CARDIAC DISORDER [None]
  - DYSPNOEA [None]
